FAERS Safety Report 5126520-2 (Version None)
Quarter: 2006Q4

REPORT INFORMATION
  Report Type: 
  Country: None (occurrence: None)
  Receive Date: 20061010
  Receipt Date: 20060926
  Transmission Date: 20070319
  Serious: Yes (Life-Threatening, Hospitalization, Disabling)
  Sender: FDA-Public Use
  Company Number: AND_0416_2006

PATIENT
  Age: 71 Year
  Sex: Female
  Weight: 54.4316 kg

DRUGS (3)
  1. KETOPROFEN [Suspect]
     Indication: BACK PAIN
     Dosage: 200 MG VARIABLE PO
     Route: 048
  2. PREMARIN [Concomitant]
  3. VASOTEC [Concomitant]

REACTIONS (7)
  - ABDOMINAL PAIN [None]
  - BLOOD PRESSURE DECREASED [None]
  - DIZZINESS [None]
  - DRUG EFFECT DECREASED [None]
  - HAEMORRHAGIC STROKE [None]
  - HYPERTENSION [None]
  - NEUROPATHY [None]
